FAERS Safety Report 11093464 (Version 3)
Quarter: 2019Q4

REPORT INFORMATION
  Report Type: Spontaneous
  Country: US (occurrence: US)
  Receive Date: 20150506
  Receipt Date: 20191105
  Transmission Date: 20200122
  Serious: Yes (Other)
  Sender: FDA-Public Use
  Company Number: US-PFIZER INC-2015153757

PATIENT
  Age: 60 Year
  Sex: Female
  Weight: 92.9 kg

DRUGS (6)
  1. LIPITOR [Suspect]
     Active Substance: ATORVASTATIN CALCIUM
     Indication: LOW DENSITY LIPOPROTEIN INCREASED
     Dosage: 40 MG, DAILY
     Route: 048
     Dates: start: 2006, end: 2013
  2. LIPITOR [Suspect]
     Active Substance: ATORVASTATIN CALCIUM
     Indication: HYPERLIPIDAEMIA
  3. LIPITOR [Suspect]
     Active Substance: ATORVASTATIN CALCIUM
     Indication: CARDIOVASCULAR EVENT PROPHYLAXIS
     Dosage: 40 MG, UNK (40 MG FOR 4 DAYS THEN 80 MG FOR THE OTHER 3 DAYS EACH WEEK)
     Dates: start: 20090720, end: 20100112
  4. LIPITOR [Suspect]
     Active Substance: ATORVASTATIN CALCIUM
     Indication: BLOOD CHOLESTEROL INCREASED
     Dosage: 40 MG, UNK (40 MG FOR 4 DAYS THEN 80 MG FOR THE OTHER 3 DAYS EACH WEEK)
     Dates: start: 20120907, end: 20130704
  5. ATORVASTATIN CALCIUM. [Suspect]
     Active Substance: ATORVASTATIN CALCIUM
     Indication: HYPERLIPIDAEMIA
     Dosage: 40 MG, UNK (40 MG FOR 4 DAYS THEN 80 MG FOR THE OTHER 3 DAYS EACH WEEK)
     Dates: start: 20130709
  6. LIPITOR [Suspect]
     Active Substance: ATORVASTATIN CALCIUM
     Indication: BLOOD TRIGLYCERIDES INCREASED

REACTIONS (1)
  - Type 2 diabetes mellitus [Not Recovered/Not Resolved]

NARRATIVE: CASE EVENT DATE: 20090209
